FAERS Safety Report 16202236 (Version 2)
Quarter: 2019Q2

REPORT INFORMATION
  Report Type: Spontaneous
  Country: US (occurrence: US)
  Receive Date: 20190416
  Receipt Date: 20190422
  Transmission Date: 20190711
  Serious: Yes (Other)
  Sender: FDA-Public Use
  Company Number: US-CHIESI USA, INC.-US-2019CHI000152

PATIENT

DRUGS (1)
  1. KENGREAL [Suspect]
     Active Substance: CANGRELOR
     Indication: PERCUTANEOUS CORONARY INTERVENTION
     Dosage: UNK
     Route: 042
     Dates: start: 20190402

REACTIONS (5)
  - Dyspnoea [Unknown]
  - Bradycardia [Unknown]
  - Cardiac arrest [Unknown]
  - Cerebral hypoperfusion [Unknown]
  - Anxiety [Unknown]

NARRATIVE: CASE EVENT DATE: 20190402
